FAERS Safety Report 15412771 (Version 1)
Quarter: 2018Q3

REPORT INFORMATION
  Report Type: Spontaneous
  Country: US (occurrence: US)
  Receive Date: 20180921
  Receipt Date: 20180921
  Transmission Date: 20181010
  Serious: No
  Sender: FDA-Public Use
  Company Number: US-TELIGENT, INC-IGIL20180521

PATIENT
  Age: 80 Year
  Sex: Male

DRUGS (1)
  1. TRIAMCINOLONE ACTEONIDE [Suspect]
     Active Substance: TRIAMCINOLONE ACETONIDE
     Indication: ECZEMA
     Dosage: UNKNOWN
     Route: 061
     Dates: start: 20180720, end: 20180917

REACTIONS (1)
  - Medication residue present [Recovered/Resolved]

NARRATIVE: CASE EVENT DATE: 20180720
